FAERS Safety Report 21659198 (Version 1)
Quarter: 2022Q4

REPORT INFORMATION
  Report Type: Spontaneous
  Country: US (occurrence: None)
  Receive Date: 20221129
  Receipt Date: 20221129
  Transmission Date: 20230113
  Serious: Yes (Hospitalization)
  Sender: FDA-Public Use
  Company Number: None

PATIENT
  Age: 60 Year
  Sex: Male
  Weight: 72 kg

DRUGS (2)
  1. CARBOPLATIN [Suspect]
     Active Substance: CARBOPLATIN
     Dates: end: 20221116
  2. TAXOL [Suspect]
     Active Substance: PACLITAXEL
     Dates: end: 20221116

REACTIONS (6)
  - Dysphagia [None]
  - Drug intolerance [None]
  - Odynophagia [None]
  - Fluid intake reduced [None]
  - Dysphagia [None]
  - Constipation [None]

NARRATIVE: CASE EVENT DATE: 20221125
